FAERS Safety Report 20638371 (Version 1)
Quarter: 2022Q1

REPORT INFORMATION
  Report Type: Spontaneous
  Country: US (occurrence: None)
  Receive Date: 20220325
  Receipt Date: 20220325
  Transmission Date: 20220423
  Serious: Yes (Death, Other)
  Sender: FDA-Public Use
  Company Number: 2022A124834

PATIENT
  Age: 80 Year
  Sex: Female
  Weight: 50 kg

DRUGS (3)
  1. ANDEXANET ALFA [Suspect]
     Active Substance: ANDEXANET ALFA
     Indication: Procoagulant therapy
     Route: 040
  2. COAGULATION FACTOR IX HUMAN\COAGULATION FACTOR VII HUMAN\COAGULATION F [Suspect]
     Active Substance: COAGULATION FACTOR IX HUMAN\COAGULATION FACTOR VII HUMAN\COAGULATION FACTOR X HUMAN\PROTEIN C\PROTEI
     Indication: Procoagulant therapy
     Route: 065
  3. APIXABAN [Suspect]
     Active Substance: APIXABAN
     Indication: Atrial fibrillation
     Dosage: 5 MG TWICE DAILY; UNKNOWN TIMING OF LAST DOSE
     Route: 065

REACTIONS (7)
  - Death [Fatal]
  - Carotid artery occlusion [Unknown]
  - Cerebral artery occlusion [Unknown]
  - Hyponatraemia [Unknown]
  - Urinary tract infection [Unknown]
  - Delirium [Unknown]
  - Mental status changes [Unknown]
